FAERS Safety Report 17674107 (Version 2)
Quarter: 2020Q2

REPORT INFORMATION
  Report Type: Spontaneous
  Country: CZ (occurrence: CZ)
  Receive Date: 20200416
  Receipt Date: 20200624
  Transmission Date: 20200714
  Serious: Yes (Life-Threatening)
  Sender: FDA-Public Use
  Company Number: CZ-BAXTER-2020BAX007916

PATIENT
  Age: 60 Year
  Sex: Male

DRUGS (7)
  1. RITUXIMAB. [Suspect]
     Active Substance: RITUXIMAB
     Indication: DIFFUSE LARGE B-CELL LYMPHOMA
     Dosage: 6 CYCLES OF R-CHOP THERAPY + TWO CYCLES OF RITUXIMAB; CYCLICAL
     Route: 065
     Dates: start: 2008, end: 2008
  2. DOXIL [Suspect]
     Active Substance: DOXORUBICIN HYDROCHLORIDE
     Indication: DIFFUSE LARGE B-CELL LYMPHOMA
     Dosage: 6 CYCLES OF R-CHOP THERAPY + TWO CYCLES OF RITUXIMAB; CYCLICAL (1 CYCLICAL)
     Route: 065
     Dates: start: 2008, end: 2008
  3. PREDNISONE. [Suspect]
     Active Substance: PREDNISONE
     Indication: DIFFUSE LARGE B-CELL LYMPHOMA
     Dosage: 6 CYCLES OF R-CHOP THERAPY + TWO CYCLES OF RITUXIMAB; CYCLICAL
     Route: 065
     Dates: start: 2008, end: 2008
  4. RITUXIMAB. [Suspect]
     Active Substance: RITUXIMAB
     Dosage: (2 CYCLE)
     Route: 065
  5. PERINDOPRIL [Concomitant]
     Active Substance: PERINDOPRIL
     Indication: HYPERTENSION
     Route: 065
     Dates: start: 2008, end: 2008
  6. ENDOXAN 1G [Suspect]
     Active Substance: CYCLOPHOSPHAMIDE
     Indication: DIFFUSE LARGE B-CELL LYMPHOMA
     Dosage: 6 CYCLES OF R-CHOP THERAPY + TWO CYCLES OF RITUXIMAB; CYCLICAL
     Route: 065
     Dates: start: 2008, end: 2008
  7. VINCRISTINE [Suspect]
     Active Substance: VINCRISTINE
     Indication: DIFFUSE LARGE B-CELL LYMPHOMA
     Dosage: 6 CYCLES OF R-CHOP THERAPY + TWO CYCLES OF RITUXIMAB; CYCLICAL
     Route: 065
     Dates: start: 2008, end: 2008

REACTIONS (2)
  - Infection [Unknown]
  - Neutropenia [Unknown]

NARRATIVE: CASE EVENT DATE: 2008
